FAERS Safety Report 10734278 (Version 1)
Quarter: 2015Q1

REPORT INFORMATION
  Report Type: Spontaneous
  Country: US (occurrence: US)
  Receive Date: 20150123
  Receipt Date: 20150123
  Transmission Date: 20150721
  Serious: Yes (Other)
  Sender: FDA-Public Use
  Company Number: US-PFIZER INC-2015024912

PATIENT
  Sex: Female

DRUGS (2)
  1. ADVIL [Suspect]
     Active Substance: IBUPROFEN
     Indication: MUSCULOSKELETAL PAIN
     Dosage: UNK, EVERY DAY
  2. ADVIL [Suspect]
     Active Substance: IBUPROFEN
     Indication: SLEEP DISORDER

REACTIONS (3)
  - Nausea [Unknown]
  - Intentional product misuse [Unknown]
  - Gastric ulcer [Unknown]
